FAERS Safety Report 12253725 (Version 1)
Quarter: 2016Q2

REPORT INFORMATION
  Report Type: Spontaneous
  Country: SE (occurrence: SE)
  Receive Date: 20160411
  Receipt Date: 20160411
  Transmission Date: 20160815
  Serious: Yes (Hospitalization)
  Sender: FDA-Public Use
  Company Number: SE-JNJFOC-20160328350

PATIENT
  Age: 70 Year
  Sex: Male

DRUGS (5)
  1. PREDNISOLON ALTERNOVA [Concomitant]
     Active Substance: PREDNISOLONE
     Route: 065
  2. XGEVA [Concomitant]
     Active Substance: DENOSUMAB
     Route: 065
     Dates: start: 201602
  3. LEUPRORELIN SANDOZ [Concomitant]
     Active Substance: LEUPROLIDE ACETATE
     Route: 065
  4. ZYTIGA [Suspect]
     Active Substance: ABIRATERONE ACETATE
     Indication: PROSTATE CANCER METASTATIC
     Route: 048
     Dates: start: 20150515, end: 20160309
  5. KALCIPOS-D [Concomitant]
     Active Substance: CALCIUM CARBONATE\CHOLECALCIFEROL
     Dosage: 500 MG/400 IE
     Route: 065

REACTIONS (3)
  - Cerebral infarction [Unknown]
  - Atrial fibrillation [Not Recovered/Not Resolved]
  - Blood urine present [Unknown]

NARRATIVE: CASE EVENT DATE: 201603
